FAERS Safety Report 5314548-9 (Version None)
Quarter: 2007Q2

REPORT INFORMATION
  Report Type: 
  Country: None (occurrence: None)
  Receive Date: 20070502
  Receipt Date: 20070427
  Transmission Date: 20071010
  Serious: Yes (Hospitalization)
  Sender: FDA-Public Use
  Company Number: PHHO2007AT07344

PATIENT
  Sex: Male
  Weight: 78.3 kg

DRUGS (1)
  1. TEGRETOL [Suspect]
     Dosage: 600 MG THEN INCREASED INCREMENTALLY.
     Dates: start: 20070321, end: 20070326

REACTIONS (1)
  - TRANSAMINASES INCREASED [None]
